FAERS Safety Report 8484889-5 (Version None)
Quarter: 2012Q3

REPORT INFORMATION
  Report Type: 
  Country: None (occurrence: None)
  Receive Date: 20120703
  Receipt Date: 20120625
  Transmission Date: 20120928
  Serious: Yes (Other)
  Sender: FDA-Public Use
  Company Number: IT-ASTELLAS-2012US005768

PATIENT
  Sex: Female

DRUGS (1)
  1. TARCEVA [Suspect]
     Indication: ADENOSQUAMOUS CELL LUNG CANCER STAGE IV
     Dosage: 100 MG, UID/QD
     Route: 048
     Dates: start: 20110125, end: 20110321

REACTIONS (2)
  - ANAEMIA [None]
  - INCORRECT DOSE ADMINISTERED [None]
